FAERS Safety Report 9222192 (Version 2)
Quarter: 2013Q3

REPORT INFORMATION
  Report Type: Report from Study
  Country: CA (occurrence: CA)
  Receive Date: 20130410
  Receipt Date: 20130731
  Transmission Date: 20140515
  Serious: Yes (Other)
  Sender: FDA-Public Use
  Company Number: PHHY2013CA033620

PATIENT
  Age: 85 Year
  Sex: Female

DRUGS (3)
  1. ACLASTA [Suspect]
     Indication: OSTEOPOROSIS
     Dosage: UNK UKN, UNK
     Route: 042
     Dates: start: 20110511
  2. ACLASTA [Suspect]
     Dosage: UNK UKN, UNK
     Route: 042
     Dates: start: 20120511
  3. ACLASTA [Suspect]
     Dosage: 5 MG/100 ML, UNK
     Route: 042
     Dates: start: 201301

REACTIONS (11)
  - Macular degeneration [Unknown]
  - Fall [Unknown]
  - Head injury [Unknown]
  - Visual acuity reduced [Unknown]
  - Eye disorder [Unknown]
  - Infection [Unknown]
  - Cognitive disorder [Unknown]
  - Malaise [Unknown]
  - Dizziness [Unknown]
  - Neck pain [Unknown]
  - Osteoarthritis [Unknown]
